FAERS Safety Report 24428937 (Version 1)
Quarter: 2024Q4

REPORT INFORMATION
  Report Type: Spontaneous
  Country: US (occurrence: None)
  Receive Date: 20241011
  Receipt Date: 20241011
  Transmission Date: 20250115
  Serious: Yes (Death)
  Sender: Public
  Company Number: None

PATIENT
  Age: 51 Year
  Sex: Male
  Weight: 68 kg

DRUGS (1)
  1. TAXOL [Suspect]
     Active Substance: PACLITAXEL
     Indication: Lung neoplasm malignant
     Dosage: OTHER FREQUENCY : TIMING PER CHEMO;?
     Route: 041
     Dates: start: 20241008, end: 20241008

REACTIONS (10)
  - Dyspnoea [None]
  - Chest discomfort [None]
  - Hyperhidrosis [None]
  - Infusion related reaction [None]
  - Heart rate increased [None]
  - Blood pressure immeasurable [None]
  - Oxygen saturation decreased [None]
  - Agonal respiration [None]
  - Depressed level of consciousness [None]
  - Cardiac arrest [None]

NARRATIVE: CASE EVENT DATE: 20241008
